FAERS Safety Report 9349098 (Version 1)
Quarter: 2013Q2

REPORT INFORMATION
  Report Type: Spontaneous
  Country: BE (occurrence: BE)
  Receive Date: 20130614
  Receipt Date: 20130614
  Transmission Date: 20140414
  Serious: Yes (Hospitalization, Other)
  Sender: FDA-Public Use
  Company Number: BE-009507513-1306BEL005269

PATIENT
  Age: 50 Year
  Sex: Female

DRUGS (2)
  1. ESMERON [Suspect]
     Dosage: UNK
     Dates: start: 201305, end: 201305
  2. PROPOFOL [Concomitant]
     Dosage: UNK
     Dates: start: 201305, end: 201305

REACTIONS (3)
  - Pulse absent [Unknown]
  - Anaphylactic reaction [Unknown]
  - Blood pressure decreased [Unknown]
